FAERS Safety Report 4783491-6 (Version None)
Quarter: 2005Q3

REPORT INFORMATION
  Report Type: 
  Country: None (occurrence: None)
  Receive Date: 20050928
  Receipt Date: 20050928
  Transmission Date: 20060218
  Serious: Yes (Life-Threatening, Hospitalization)
  Sender: FDA-Public Use
  Company Number: None

PATIENT
  Age: 22 Year
  Sex: Male
  Weight: 53.5244 kg

DRUGS (1)
  1. TRAMODAL 50MG [Suspect]
     Indication: SKIN BACTERIAL INFECTION
     Dosage: 40MG UP TO FOUR TIMES PO
     Route: 048
     Dates: start: 20050919, end: 20050925

REACTIONS (4)
  - IMPAIRED WORK ABILITY [None]
  - MENTAL IMPAIRMENT [None]
  - OVERDOSE [None]
  - SUICIDE ATTEMPT [None]
